FAERS Safety Report 21379419 (Version 2)
Quarter: 2022Q4

REPORT INFORMATION
  Report Type: Spontaneous
  Country: US (occurrence: US)
  Receive Date: 20220927
  Receipt Date: 20221102
  Transmission Date: 20230113
  Serious: Yes (Other)
  Sender: FDA-Public Use
  Company Number: US-SANOFI-01289999

PATIENT
  Age: 88 Year
  Sex: Female
  Weight: 54 kg

DRUGS (1)
  1. DULCOLAX NOS [Suspect]
     Active Substance: BISACODYL OR DOCUSATE SODIUM
     Indication: Irritable bowel syndrome
     Dosage: TABLET EVERY OTHER DAY AT NIGHT

REACTIONS (1)
  - Drug dependence [Unknown]
